FAERS Safety Report 5856428-6 (Version None)
Quarter: 2008Q3

REPORT INFORMATION
  Report Type: 
  Country: None (occurrence: None)
  Receive Date: 20080825
  Receipt Date: 20080623
  Transmission Date: 20090109
  Serious: No
  Sender: FDA-Public Use
  Company Number: A0721389A

PATIENT
  Age: 61 Year
  Sex: Female

DRUGS (6)
  1. VERAMYST [Suspect]
     Dosage: 4SPR PER DAY
     Route: 045
     Dates: start: 20080401, end: 20080403
  2. AMLODIPINE BESYLATE AND BENAZEPRIL HCL [Concomitant]
  3. CLOBETASOL PROPIONATE [Concomitant]
  4. LISINOPRIL [Concomitant]
  5. LOTREL [Concomitant]
  6. AMOXICILLIN [Concomitant]

REACTIONS (5)
  - DRUG INEFFECTIVE [None]
  - MIDDLE EAR EFFUSION [None]
  - NOCTURNAL DYSPNOEA [None]
  - PHARMACEUTICAL PRODUCT COMPLAINT [None]
  - SINUSITIS [None]
